FAERS Safety Report 12360955 (Version 1)
Quarter: 2016Q2

REPORT INFORMATION
  Report Type: Spontaneous
  Country: US (occurrence: US)
  Receive Date: 20160512
  Receipt Date: 20160512
  Transmission Date: 20160815
  Serious: Yes (Other)
  Sender: FDA-Public Use
  Company Number: US-PFIZER INC-2016254831

PATIENT
  Sex: Female

DRUGS (3)
  1. ACCUPRIL [Suspect]
     Active Substance: QUINAPRIL HYDROCHLORIDE
  2. GLUCOTROL [Suspect]
     Active Substance: GLIPIZIDE
  3. LYRICA [Suspect]
     Active Substance: PREGABALIN

REACTIONS (3)
  - Hypertension [Unknown]
  - Malaise [Unknown]
  - Activities of daily living impaired [Unknown]

NARRATIVE: CASE EVENT DATE: 20160510
